FAERS Safety Report 16809589 (Version 1)
Quarter: 2019Q4

REPORT INFORMATION
  Report Type: Spontaneous
  Country: US (occurrence: US)
  Receive Date: 20190915
  Receipt Date: 20190915
  Transmission Date: 20200122
  Serious: Yes (Death)
  Sender: FDA-Public Use
  Company Number: None

PATIENT
  Age: 65 Year
  Sex: Female

DRUGS (2)
  1. LISINOPRIL. [Suspect]
     Active Substance: LISINOPRIL
     Indication: HYPERTENSION
     Route: 048
     Dates: start: 20190226, end: 20190228
  2. SOMETHING FOR ANXIETY [Concomitant]

REACTIONS (3)
  - Angioedema [None]
  - Cardiac failure [None]
  - Respiratory tract oedema [None]

NARRATIVE: CASE EVENT DATE: 20190301
